FAERS Safety Report 5465859-8 (Version None)
Quarter: 2007Q3

REPORT INFORMATION
  Report Type: 
  Country: None (occurrence: None)
  Receive Date: 20070924
  Receipt Date: 20070918
  Transmission Date: 20080115
  Serious: Yes (Other)
  Sender: FDA-Public Use
  Company Number: PHEH2007US10257

PATIENT
  Age: 67 Year
  Sex: Female

DRUGS (1)
  1. TEKTURNA [Suspect]
     Dosage: 150 MG, QD
     Route: 048
     Dates: start: 20070501

REACTIONS (4)
  - CATARACT OPERATION [None]
  - EYE LASER SURGERY [None]
  - EYE OPERATION [None]
  - PHOTOPHOBIA [None]
